FAERS Safety Report 15175643 (Version 1)
Quarter: 2018Q3

REPORT INFORMATION
  Report Type: Spontaneous
  Country: FI (occurrence: FI)
  Receive Date: 20180720
  Receipt Date: 20180720
  Transmission Date: 20181010
  Serious: Yes (Other)
  Sender: FDA-Public Use
  Company Number: PHHY2018FI049239

PATIENT
  Age: 69 Year
  Sex: Male

DRUGS (20)
  1. RISPERIDONE. [Suspect]
     Active Substance: RISPERIDONE
     Dosage: 4 MG, QD, 4 MG, EACH EVENING
     Route: 065
     Dates: start: 20180114
  2. RISPERIDONE. [Suspect]
     Active Substance: RISPERIDONE
     Dosage: 2 MG, QD, 2 MG, EACH EVENING
     Route: 065
     Dates: start: 20180124
  3. RISPERIDONE. [Suspect]
     Active Substance: RISPERIDONE
     Dosage: 1 MG, UNKNOWN
     Route: 065
     Dates: start: 20180127, end: 20180129
  4. ATIVAN [Suspect]
     Active Substance: LORAZEPAM
     Dosage: 4 MG, PRN
     Route: 065
  5. ZYPREXA [Suspect]
     Active Substance: OLANZAPINE
     Dosage: 10 MG, UNK
     Route: 065
  6. DIAPAM (DIAZEPAM) [Suspect]
     Active Substance: DIAZEPAM
     Indication: PRODUCT USED FOR UNKNOWN INDICATION
     Dosage: 30 MG, QD (10 MG, TID)
     Route: 065
     Dates: start: 20180126
  7. ZYPREXA [Suspect]
     Active Substance: OLANZAPINE
     Dosage: 7.5 MG, UNK
     Route: 065
     Dates: start: 20180131, end: 20180203
  8. LEPONEX [Suspect]
     Active Substance: CLOZAPINE
     Indication: HALLUCINATION
     Dosage: UNK
     Route: 065
  9. ATIVAN [Suspect]
     Active Substance: LORAZEPAM
     Dosage: 2 MG, PRN
     Route: 065
  10. RISPERIDONE. [Suspect]
     Active Substance: RISPERIDONE
     Indication: PSYCHOTIC SYMPTOM
     Dosage: 1 MG, QD (1 MG, EACH EVENING)
     Route: 065
     Dates: start: 20171231
  11. RISPERIDONE. [Suspect]
     Active Substance: RISPERIDONE
     Dosage: 3 MG, QD, 3 MG, EACH EVENING
     Route: 065
     Dates: start: 20180107
  12. RISPERIDONE. [Suspect]
     Active Substance: RISPERIDONE
     Dosage: 3 MG, QD, 3 MG, EACH EVENING
     Route: 065
     Dates: start: 20180115
  13. SERENASE (HALOPERIDOL) [Suspect]
     Active Substance: HALOPERIDOL
     Dosage: 5 MG, QD (2.5 MG, BID)
     Route: 065
     Dates: start: 20180129
  14. RISPERIDONE. [Suspect]
     Active Substance: RISPERIDONE
     Dosage: 2 MG, QD, 2 MG, EACH EVENING
     Route: 065
     Dates: start: 20180102
  15. ATIVAN [Suspect]
     Active Substance: LORAZEPAM
     Dosage: 3 MG, PRN
     Route: 065
  16. ZYPREXA [Suspect]
     Active Substance: OLANZAPINE
     Indication: PSYCHOTIC SYMPTOM
     Dosage: 15 MG, UNK
     Route: 065
  17. SERENASE (HALOPERIDOL) [Suspect]
     Active Substance: HALOPERIDOL
     Indication: HALLUCINATION
     Dosage: 5 MG, PRN
     Route: 065
  18. ATIVAN [Suspect]
     Active Substance: LORAZEPAM
     Dosage: 2 MG, PRN
     Route: 065
  19. DIAPAM (DIAZEPAM) [Suspect]
     Active Substance: DIAZEPAM
     Dosage: 20 MG, UNK
     Route: 065
     Dates: start: 20180129, end: 20180201
  20. ATIVAN [Suspect]
     Active Substance: LORAZEPAM
     Indication: HALLUCINATION
     Dosage: 2 MG, PRN
     Route: 065

REACTIONS (3)
  - Parkinsonism [Unknown]
  - Vascular dementia [Unknown]
  - Hallucination [Recovering/Resolving]
